FAERS Safety Report 8054887-4 (Version None)
Quarter: 2012Q1

REPORT INFORMATION
  Report Type: 
  Country: None (occurrence: None)
  Receive Date: 20120119
  Receipt Date: 20120109
  Transmission Date: 20120608
  Serious: Yes (Other)
  Sender: FDA-Public Use
  Company Number: US-BAYER-2011-032010

PATIENT
  Sex: Female

DRUGS (7)
  1. YAZ [Suspect]
  2. YASMIN [Suspect]
     Indication: ACNE
  3. YASMIN [Suspect]
     Indication: PREMENSTRUAL SYNDROME
  4. YAZ [Suspect]
     Indication: PREMENSTRUAL SYNDROME
  5. YASMIN [Suspect]
  6. MOTRIN [Concomitant]
     Indication: BACK PAIN
     Dosage: 400 MG, UNK
     Route: 048
     Dates: start: 19910101, end: 20090101
  7. YAZ [Suspect]
     Indication: ACNE

REACTIONS (7)
  - MENTAL DISORDER [None]
  - MALAISE [None]
  - EMOTIONAL DISTRESS [None]
  - INJURY [None]
  - CEREBRAL VENOUS THROMBOSIS [None]
  - CHOLESTASIS [None]
  - PAIN [None]
